FAERS Safety Report 18214990 (Version 4)
Quarter: 2020Q4

REPORT INFORMATION
  Report Type: Report from Study
  Country: DE (occurrence: DE)
  Receive Date: 20200831
  Receipt Date: 20201005
  Transmission Date: 20210113
  Serious: Yes (Death, Hospitalization, Other)
  Sender: FDA-Public Use
  Company Number: DE-BRISTOL-MYERS SQUIBB COMPANY-BMS-2020-066828

PATIENT
  Age: 59 Year
  Sex: Female
  Weight: 49.3 kg

DRUGS (4)
  1. GRANISETRON [Concomitant]
     Active Substance: GRANISETRON
     Indication: VOMITING
     Dosage: 2 MILLIGRAM
     Route: 048
     Dates: start: 20200820, end: 20200827
  2. ACTRAPID [Concomitant]
     Active Substance: INSULIN HUMAN
     Indication: TYPE 2 DIABETES MELLITUS
     Dosage: 8 - 10 IU
     Route: 058
     Dates: start: 20200825, end: 20200827
  3. IPILIMUMAB [Suspect]
     Active Substance: IPILIMUMAB
     Indication: SMALL CELL LUNG CANCER
     Dosage: 157 MILLIGRAM
     Route: 041
     Dates: start: 20200803, end: 20200825
  4. NIVOLUMAB [Suspect]
     Active Substance: NIVOLUMAB
     Indication: SMALL CELL LUNG CANCER
     Dosage: 53 MILLIGRAM
     Route: 041
     Dates: start: 20200803, end: 20200825

REACTIONS (2)
  - Circulatory collapse [Fatal]
  - Pneumonia [Unknown]

NARRATIVE: CASE EVENT DATE: 20200818
